FAERS Safety Report 12706481 (Version 1)
Quarter: 2016Q3

REPORT INFORMATION
  Report Type: Spontaneous
  Country: US (occurrence: US)
  Receive Date: 20160901
  Receipt Date: 20160901
  Transmission Date: 20161109
  Serious: No
  Sender: FDA-Public Use
  Company Number: US-PFIZER INC-2016407997

PATIENT
  Sex: Female

DRUGS (1)
  1. XELJANZ XR [Suspect]
     Active Substance: TOFACITINIB CITRATE
     Dosage: 11 MG, UNK

REACTIONS (7)
  - Sleep disorder [Unknown]
  - Contusion [Unknown]
  - Swelling [Unknown]
  - Fatigue [Unknown]
  - Drug tolerance [Unknown]
  - Fall [Unknown]
  - Musculoskeletal stiffness [Unknown]
